FAERS Safety Report 10174387 (Version 3)
Quarter: 2014Q4

REPORT INFORMATION
  Report Type: Report from Study
  Country: DE (occurrence: DE)
  Receive Date: 20140515
  Receipt Date: 20141002
  Transmission Date: 20150528
  Serious: Yes (Hospitalization)
  Sender: FDA-Public Use
  Company Number: DE-ABBVIE-14P-062-1201526-00

PATIENT
  Age: 56 Year
  Sex: Male

DRUGS (2)
  1. HUMIRA [Suspect]
     Active Substance: ADALIMUMAB
     Indication: PRODUCT USED FOR UNKNOWN INDICATION
     Route: 058
  2. HUMIRA [Suspect]
     Active Substance: ADALIMUMAB
     Route: 058
     Dates: start: 201404

REACTIONS (9)
  - Rotator cuff syndrome [Unknown]
  - Tendon rupture [Recovered/Resolved]
  - Tenosynovitis [Unknown]
  - Arthritis [Unknown]
  - Bursitis [Unknown]
  - Fall [Unknown]
  - Pain [Recovered/Resolved]
  - Hypokinesia [Recovered/Resolved]
  - Joint injury [Unknown]

NARRATIVE: CASE EVENT DATE: 201312
